FAERS Safety Report 12398140 (Version 1)
Quarter: 2016Q2

REPORT INFORMATION
  Report Type: Spontaneous
  Country: VE (occurrence: VE)
  Receive Date: 20160524
  Receipt Date: 20160524
  Transmission Date: 20160815
  Serious: Yes (Hospitalization, Other)
  Sender: FDA-Public Use
  Company Number: PHHY2016VE070175

PATIENT
  Sex: Female
  Weight: 60 kg

DRUGS (2)
  1. VOTRIENT [Suspect]
     Active Substance: PAZOPANIB HYDROCHLORIDE
     Indication: NASAL CAVITY CANCER
     Dosage: 800 MG, QD
     Route: 048
     Dates: start: 201601
  2. VOTRIENT [Suspect]
     Active Substance: PAZOPANIB HYDROCHLORIDE
     Dosage: 400 MG, QD
     Route: 048

REACTIONS (6)
  - Asthenia [Unknown]
  - Hair colour changes [Unknown]
  - Recurrent cancer [Unknown]
  - Drug intolerance [Unknown]
  - Product use issue [Unknown]
  - Haemorrhage [Unknown]
